FAERS Safety Report 13148755 (Version 10)
Quarter: 2020Q1

REPORT INFORMATION
  Report Type: Spontaneous
  Country: US (occurrence: US)
  Receive Date: 20170125
  Receipt Date: 20200109
  Transmission Date: 20200409
  Serious: Yes (Other)
  Sender: FDA-Public Use
  Company Number: US-PFIZER INC-2017031786

PATIENT
  Age: 69 Year
  Sex: Female
  Weight: 66 kg

DRUGS (11)
  1. SYNTHROID [Concomitant]
     Active Substance: LEVOTHYROXINE SODIUM
     Dosage: UNK
  2. XGEVA [Concomitant]
     Active Substance: DENOSUMAB
     Dosage: 1 DF, CYCLIC (EVERY 28 DAYS)
     Dates: start: 20141119
  3. ASPIRIN. [Concomitant]
     Active Substance: ASPIRIN
     Dosage: UNK
  4. IBRANCE [Suspect]
     Active Substance: PALBOCICLIB
     Dosage: 75 MG, CYCLIC (ONCE A DAY 21 DAYS ON AND 7 DAYS OFF)
     Route: 048
     Dates: start: 20160801, end: 201911
  5. LEVOFLOXACIN. [Concomitant]
     Active Substance: LEVOFLOXACIN
     Dosage: UNK
  6. XGEVA [Concomitant]
     Active Substance: DENOSUMAB
     Dosage: 1 DF, EVERY 3 MONTHS
  7. PEPCID [Concomitant]
     Active Substance: FAMOTIDINE
     Dosage: UNK
  8. FASLODEX [Concomitant]
     Active Substance: FULVESTRANT
     Indication: BREAST CANCER METASTATIC
     Dosage: UNK, MONTHLY (SHOTS IN BUTT)
     Dates: start: 201601
  9. IBRANCE [Suspect]
     Active Substance: PALBOCICLIB
     Indication: BREAST CANCER METASTATIC
     Dosage: 125 MG, 1X/DAY (21 PILLS)
     Route: 048
     Dates: start: 20160624, end: 20160714
  10. FASLODEX [Concomitant]
     Active Substance: FULVESTRANT
     Dosage: 2 DF, UNK (1 SHOT IN EACH BUTT CHEEK )
     Route: 030
     Dates: start: 20160623
  11. SIMVASTATIN. [Concomitant]
     Active Substance: SIMVASTATIN
     Dosage: UNK

REACTIONS (13)
  - Ageusia [Recovered/Resolved]
  - Frequent bowel movements [Recovered/Resolved]
  - Fatigue [Unknown]
  - White blood cell count decreased [Unknown]
  - Pain in jaw [Recovered/Resolved]
  - Malaise [Recovered/Resolved]
  - Headache [Recovered/Resolved]
  - Neoplasm progression [Unknown]
  - Asthenia [Recovered/Resolved]
  - Pneumonia [Unknown]
  - Hyperaesthesia [Recovered/Resolved]
  - Dizziness [Recovered/Resolved]
  - Migraine [Unknown]

NARRATIVE: CASE EVENT DATE: 20160624
